FAERS Safety Report 7064405-5 (Version None)
Quarter: 2010Q4

REPORT INFORMATION
  Report Type: 
  Country: None (occurrence: None)
  Receive Date: 20101027
  Receipt Date: 20101013
  Transmission Date: 20110411
  Serious: Yes (Hospitalization)
  Sender: FDA-Public Use
  Company Number: PHHY2010MX71747

PATIENT
  Sex: Male

DRUGS (1)
  1. DIOVAN [Suspect]
     Indication: HYPERTENSION
     Dosage: 2 TABLETS (160 MG ) PER DAY

REACTIONS (3)
  - NEPHRECTOMY [None]
  - RENAL DISORDER [None]
  - WOUND INFECTION [None]
